FAERS Safety Report 10042330 (Version 1)
Quarter: 2014Q1

REPORT INFORMATION
  Report Type: Spontaneous
  Country: HU (occurrence: HU)
  Receive Date: 20140327
  Receipt Date: 20140327
  Transmission Date: 20141002
  Serious: Yes (Life-Threatening)
  Sender: FDA-Public Use
  Company Number: HU-VERTEX PHARMACEUTICALS INC-2014-001503

PATIENT
  Sex: 0

DRUGS (1)
  1. INCIVO [Suspect]
     Indication: PRODUCT USED FOR UNKNOWN INDICATION
     Route: 065

REACTIONS (2)
  - Unevaluable event [Unknown]
  - Vomiting [Unknown]
